FAERS Safety Report 14890572 (Version 2)
Quarter: 2018Q2

REPORT INFORMATION
  Report Type: Spontaneous
  Country: JP (occurrence: JP)
  Receive Date: 20180514
  Receipt Date: 20180517
  Transmission Date: 20180711
  Serious: Yes (Other)
  Sender: FDA-Public Use
  Company Number: PHJP2018JP010279

PATIENT
  Sex: Male

DRUGS (14)
  1. CELLCEPT [Concomitant]
     Active Substance: MYCOPHENOLATE MOFETIL\MYCOPHENOLATE MOFETIL HYDROCHLORIDE
     Indication: RENAL TRANSPLANT
     Dosage: 2000 MG, UNK
     Route: 065
  2. CELLCEPT [Concomitant]
     Active Substance: MYCOPHENOLATE MOFETIL\MYCOPHENOLATE MOFETIL HYDROCHLORIDE
     Dosage: 500 MG, UNK
     Route: 065
  3. METHYLPREDNISOLONE. [Concomitant]
     Active Substance: METHYLPREDNISOLONE
     Dosage: 8 MG, UNK
     Route: 065
  4. SIMULECT [Suspect]
     Active Substance: BASILIXIMAB
     Dosage: 20 MG, UNK
     Route: 042
  5. METHYLPREDNISOLONE. [Concomitant]
     Active Substance: METHYLPREDNISOLONE
     Dosage: 4 MG, UNK
     Route: 065
  6. GRACEPTOR [Concomitant]
     Active Substance: TACROLIMUS
     Dosage: 2 MG, UNK
     Route: 065
  7. GRACEPTOR [Concomitant]
     Active Substance: TACROLIMUS
     Dosage: 3 MG, UNK
     Route: 065
  8. CELLCEPT [Concomitant]
     Active Substance: MYCOPHENOLATE MOFETIL\MYCOPHENOLATE MOFETIL HYDROCHLORIDE
     Dosage: 1000 MG, UNK
     Route: 065
  9. METHYLPREDNISOLONE. [Concomitant]
     Active Substance: METHYLPREDNISOLONE
     Indication: RENAL TRANSPLANT
     Dosage: 250 MG, UNK
     Route: 065
  10. METHYLPREDNISOLONE. [Concomitant]
     Active Substance: METHYLPREDNISOLONE
     Dosage: 20 MG, UNK
     Route: 065
  11. GRACEPTOR [Concomitant]
     Active Substance: TACROLIMUS
     Indication: RENAL TRANSPLANT
     Dosage: 6 MG, UNK
     Route: 065
  12. METHYLPREDNISOLONE. [Concomitant]
     Active Substance: METHYLPREDNISOLONE
     Dosage: 12 MG, UNK
     Route: 065
  13. SIMULECT [Suspect]
     Active Substance: BASILIXIMAB
     Indication: RENAL TRANSPLANT
     Dosage: 20 MG, UNK
     Route: 042
  14. METHYLPREDNISOLONE. [Concomitant]
     Active Substance: METHYLPREDNISOLONE
     Dosage: 16 MG, UNK
     Route: 065

REACTIONS (3)
  - Hydronephrosis [Unknown]
  - Lymphocele [Unknown]
  - Pyrexia [Unknown]
